FAERS Safety Report 4844904-4 (Version None)
Quarter: 2005Q4

REPORT INFORMATION
  Report Type: 
  Country: None (occurrence: None)
  Receive Date: 20051128
  Receipt Date: 20051114
  Transmission Date: 20060501
  Serious: Yes (Other)
  Sender: FDA-Public Use
  Company Number: 2005139167

PATIENT
  Age: 27 Year
  Sex: Male

DRUGS (1)
  1. BACAMPICILLIN (TABLET) (BACAMPICILLIN) [Suspect]
     Indication: PHARYNGOLARYNGEAL PAIN
     Dosage: 600 MG, ORAL
     Route: 048

REACTIONS (3)
  - APHAGIA [None]
  - CHEST PAIN [None]
  - OESOPHAGEAL ULCER [None]
